FAERS Safety Report 8046858-9 (Version None)
Quarter: 2012Q1

REPORT INFORMATION
  Report Type: 
  Country: None (occurrence: None)
  Receive Date: 20120116
  Receipt Date: 20120106
  Transmission Date: 20120608
  Serious: Yes (Other)
  Sender: FDA-Public Use
  Company Number: US-BAYER-2011-074972

PATIENT
  Sex: Female
  Weight: 95.238 kg

DRUGS (1)
  1. YASMIN [Suspect]
     Indication: PREMENSTRUAL SYNDROME
     Dosage: UNK
     Dates: start: 20060401, end: 20090401

REACTIONS (3)
  - INJURY [None]
  - PAIN [None]
  - GALLBLADDER INJURY [None]
